FAERS Safety Report 19064499 (Version 1)
Quarter: 2021Q1

REPORT INFORMATION
  Report Type: Spontaneous
  Country: US (occurrence: US)
  Receive Date: 20210326
  Receipt Date: 20210326
  Transmission Date: 20210420
  Serious: Yes (Other)
  Sender: FDA-Public Use
  Company Number: US-GLAXOSMITHKLINE-USCH2020000301

PATIENT
  Sex: Female

DRUGS (1)
  1. CHAPSTICK CLASSIC ORIGINAL [Suspect]
     Active Substance: PETROLATUM
     Indication: PRODUCT USED FOR UNKNOWN INDICATION

REACTIONS (2)
  - Dependence [Unknown]
  - Product complaint [Unknown]
